FAERS Safety Report 15700252 (Version 14)
Quarter: 2021Q4

REPORT INFORMATION
  Report Type: Spontaneous
  Country: US (occurrence: US)
  Receive Date: 20181207
  Receipt Date: 20211207
  Transmission Date: 20220303
  Serious: No
  Sender: FDA-Public Use
  Company Number: US-PFIZER INC-2018502667

PATIENT
  Age: 71 Year
  Sex: Female
  Weight: 53 kg

DRUGS (3)
  1. CELECOXIB [Suspect]
     Active Substance: CELECOXIB
     Indication: Osteoarthritis
     Dosage: 200 MG, DAILY (QUANTITY FOR 90 DAYS)
  2. CELECOXIB [Suspect]
     Active Substance: CELECOXIB
     Indication: Pain
  3. CELECOXIB [Suspect]
     Active Substance: CELECOXIB
     Indication: Arthritis

REACTIONS (9)
  - Drug ineffective [Unknown]
  - Hypersensitivity [Unknown]
  - Feeling abnormal [Unknown]
  - Insomnia [Unknown]
  - Illness [Unknown]
  - Rash [Unknown]
  - Adverse reaction [Unknown]
  - Dermatitis [Unknown]
  - Adverse drug reaction [Unknown]
